FAERS Safety Report 8421449-6 (Version None)
Quarter: 2012Q2

REPORT INFORMATION
  Report Type: 
  Country: None (occurrence: None)
  Receive Date: 20120608
  Receipt Date: 20120606
  Transmission Date: 20120825
  Serious: Yes (Hospitalization)
  Sender: FDA-Public Use
  Company Number: PHHO2012EE004045

PATIENT
  Sex: Male
  Weight: 83 kg

DRUGS (2)
  1. ALISKIREN [Suspect]
     Indication: CARDIAC FAILURE
     Dosage: UNK
     Route: 048
     Dates: start: 20101025, end: 20120308
  2. ALISKIREN [Suspect]
     Dosage: UNK
     Route: 048
     Dates: start: 20120314

REACTIONS (1)
  - HYPERTHYROIDISM [None]
